FAERS Safety Report 9640430 (Version 1)
Quarter: 2013Q4

REPORT INFORMATION
  Report Type: Spontaneous
  Country: US (occurrence: None)
  Receive Date: 20131021
  Receipt Date: 20131021
  Transmission Date: 20140711
  Serious: Yes (Other)
  Sender: FDA-Public Use
  Company Number: AUR-APL-2013-08627

PATIENT
  Age: 48 Year
  Sex: Male
  Weight: 107 kg

DRUGS (6)
  1. MELOXICAM (MELOXICAM) [Suspect]
     Indication: PRODUCT USED FOR UNKNOWN INDICATION
     Dosage: 30 MG (15 MG, 2 IN 1 D), ORAL
     Route: 048
     Dates: start: 2013
  2. CELEBREX (CELECOXIB) [Suspect]
     Dosage: 400 MG (200 MG, 2 IN 1 D] [V.16.0]
     Route: 048
     Dates: start: 2010
  3. HYDROCODONE W/ ACETAMINOPHEN (V-HYDROCHLOROTHIAZIDE) [Concomitant]
  4. LISINOPRIL W/HYDROCHLOROTHIAZIDE (ZESTORETIC) [Concomitant]
  5. GABAPENTIN (GABAPENTIN) [Concomitant]
  6. WELLBUTRIN XL (BUPROPION  HYDROCHLORIDE) [Concomitant]

REACTIONS (3)
  - Blood cholesterol increased [None]
  - Back pain [None]
  - Drug ineffective [None]
